FAERS Safety Report 4849133-6 (Version None)
Quarter: 2005Q4

REPORT INFORMATION
  Report Type: 
  Country: None (occurrence: None)
  Receive Date: 20051209
  Receipt Date: 20051205
  Transmission Date: 20060501
  Serious: Yes (Hospitalization)
  Sender: FDA-Public Use
  Company Number: RU-GLAXOSMITHKLINE-B0403152A

PATIENT
  Age: 3 Year
  Sex: Female

DRUGS (1)
  1. AUGMENTIN [Suspect]
     Indication: INFECTION

REACTIONS (2)
  - CONTUSION [None]
  - VASCULITIS [None]
